FAERS Safety Report 17351729 (Version 1)
Quarter: 2020Q1

REPORT INFORMATION
  Report Type: Spontaneous
  Country: ES (occurrence: ES)
  Receive Date: 20200130
  Receipt Date: 20200130
  Transmission Date: 20200409
  Serious: Yes (Other)
  Sender: FDA-Public Use
  Company Number: ES-ALLERGAN-2003703US

PATIENT
  Sex: Male
  Weight: 55 kg

DRUGS (1)
  1. PYLERA [Suspect]
     Active Substance: BISMUTH SUBCITRATE POTASSIUM\METRONIDAZOLE\TETRACYCLINE HYDROCHLORIDE
     Indication: HELICOBACTER TEST POSITIVE
     Dosage: 4 TOMAS DE 3 C?PSULAS CADA D?A (EN TOTAL 12 AL D?A DURANTE 10 D?AS)
     Route: 048
     Dates: start: 20191201, end: 20191211

REACTIONS (2)
  - Oral candidiasis [Unknown]
  - Trichoglossia [Not Recovered/Not Resolved]

NARRATIVE: CASE EVENT DATE: 20191211
